FAERS Safety Report 18180373 (Version 1)
Quarter: 2020Q3

REPORT INFORMATION
  Report Type: Spontaneous
  Country: US (occurrence: US)
  Receive Date: 20200821
  Receipt Date: 20200821
  Transmission Date: 20201103
  Serious: No
  Sender: FDA-Public Use
  Company Number: None

PATIENT
  Age: 17 Year
  Sex: Male
  Weight: 60.75 kg

DRUGS (4)
  1. GAMUNEX?C [Suspect]
     Active Substance: HUMAN IMMUNOGLOBULIN G
     Indication: IMMUNODEFICIENCY COMMON VARIABLE
     Dosage: ?          OTHER FREQUENCY:Q3W;?
     Route: 042
     Dates: start: 20200814, end: 20200814
  2. GAMUNEX?C [Suspect]
     Active Substance: HUMAN IMMUNOGLOBULIN G
     Indication: IMMUNODEFICIENCY COMMON VARIABLE
     Dosage: ?          OTHER FREQUENCY:Q3W;?
     Route: 042
     Dates: start: 20200814, end: 20200814
  3. DIPHENHYDRAMINE 25 MG PO [Concomitant]
     Dates: start: 20200814, end: 20200814
  4. NAPROXEN 220 MG PO [Concomitant]
     Dates: start: 20200814, end: 20200814

REACTIONS (2)
  - Rash macular [None]
  - Urticaria [None]

NARRATIVE: CASE EVENT DATE: 20200814
